FAERS Safety Report 8790247 (Version 1)
Quarter: 2012Q4

REPORT INFORMATION
  Report Type: 
  Country: US (occurrence: US)
  Receive Date: 20120917
  Receipt Date: 20120917
  Transmission Date: 20130627
  Serious: Yes (Other)
  Sender: FDA-Public Use
  Company Number: US-JNJFOC-20120904034

PATIENT
  Age: 48 Year
  Sex: Female
  Weight: 90.72 kg

DRUGS (4)
  1. BENADRYL ALLERGY ULTRATAB [Suspect]
     Indication: SLEEP DISORDER THERAPY
     Dosage: 1 tablet 1 at night
     Route: 048
     Dates: end: 20120803
  2. LISINOPRIL [Concomitant]
     Indication: HYPERTENSION
     Route: 065
  3. PRILOSEC [Concomitant]
     Indication: PROPHYLAXIS
     Route: 065
  4. IRON SUPPLEMENT [Concomitant]
     Indication: ROUTINE HEALTH MAINTENANCE
     Route: 065

REACTIONS (3)
  - Colitis [Recovered/Resolved]
  - Therapeutic response unexpected [Unknown]
  - Off label use [Unknown]
